FAERS Safety Report 19464983 (Version 4)
Quarter: 2021Q4

REPORT INFORMATION
  Report Type: Report from Study
  Country: MX (occurrence: MX)
  Receive Date: 20210626
  Receipt Date: 20211008
  Transmission Date: 20220303
  Serious: Yes (Other)
  Sender: FDA-Public Use
  Company Number: NVSC2021MX141741

PATIENT
  Age: 68 Year
  Sex: Male

DRUGS (2)
  1. DIOVAN [Suspect]
     Active Substance: VALSARTAN
     Indication: Product used for unknown indication
     Dosage: UNK, QD, 2 OR 3
     Route: 048
  2. HYDROCHLOROTHIAZIDE\VALSARTAN [Suspect]
     Active Substance: HYDROCHLOROTHIAZIDE\VALSARTAN
     Indication: Product used for unknown indication
     Dosage: UNK
     Route: 048

REACTIONS (6)
  - Arrhythmia [Unknown]
  - Pulmonary oedema [Unknown]
  - COVID-19 [Unknown]
  - Gait inability [Unknown]
  - Gait disturbance [Unknown]
  - Tachycardia [Unknown]

NARRATIVE: CASE EVENT DATE: 20200901
